FAERS Safety Report 6039937-9 (Version None)
Quarter: 2009Q1

REPORT INFORMATION
  Report Type: 
  Country: None (occurrence: None)
  Receive Date: 20090116
  Receipt Date: 20080414
  Transmission Date: 20090719
  Serious: No
  Sender: FDA-Public Use
  Company Number: US-BRISTOL-MYERS SQUIBB COMPANY-13913405

PATIENT
  Age: 67 Year
  Sex: Female

DRUGS (4)
  1. ABILIFY [Suspect]
     Indication: STRESS
     Route: 048
     Dates: start: 20070801
  2. ABILIFY [Suspect]
     Indication: ANXIETY
     Route: 048
     Dates: start: 20070801
  3. SIMVASTATIN [Concomitant]
  4. ENALAPRIL MALEATE [Concomitant]

REACTIONS (9)
  - AMNESIA [None]
  - BACK PAIN [None]
  - CHEST PAIN [None]
  - FOOD CRAVING [None]
  - HUNGER [None]
  - INSOMNIA [None]
  - LETHARGY [None]
  - PAIN IN EXTREMITY [None]
  - WEIGHT INCREASED [None]
